FAERS Safety Report 8122463-0 (Version None)
Quarter: 2012Q1

REPORT INFORMATION
  Report Type: 
  Country: None (occurrence: None)
  Receive Date: 20120208
  Receipt Date: 20111013
  Transmission Date: 20120608
  Serious: No
  Sender: FDA-Public Use
  Company Number: US-ASTRAZENECA-2011SE61744

PATIENT
  Age: 41 Year
  Sex: Female

DRUGS (6)
  1. ACCOLATE [Suspect]
     Route: 048
  2. PREVACID [Concomitant]
     Indication: GASTROOESOPHAGEAL REFLUX DISEASE
  3. HYDROCODONE [Concomitant]
  4. PROVENTIL [Concomitant]
     Indication: ASTHMA
  5. TORSEMIDE [Concomitant]
  6. ACCOLATE [Suspect]
     Indication: ASTHMA
     Route: 048

REACTIONS (3)
  - DIABETES MELLITUS [None]
  - SLEEP APNOEA SYNDROME [None]
  - DIABETIC NEUROPATHY [None]
